FAERS Safety Report 7712780-8 (Version None)
Quarter: 2011Q3

REPORT INFORMATION
  Report Type: 
  Country: None (occurrence: None)
  Receive Date: 20110826
  Receipt Date: 20110809
  Transmission Date: 20111222
  Serious: Yes (Hospitalization)
  Sender: FDA-Public Use
  Company Number: US-GLAXOSMITHKLINE-A0942229A

PATIENT
  Age: 28 Year
  Sex: Female

DRUGS (15)
  1. COLACE [Concomitant]
     Indication: CONSTIPATION
     Dosage: 100MG AS REQUIRED
  2. HYDROCHLOROTHIAZIDE [Concomitant]
     Dosage: 12.5MG PER DAY
  3. BEVACIZUMAB [Suspect]
     Indication: CERVIX CARCINOMA
     Dosage: 15MGM2 CYCLIC
     Route: 042
     Dates: start: 20110223, end: 20110703
  4. AMLODIPINE [Concomitant]
     Dosage: 5MG PER DAY
  5. LISINOPRIL [Concomitant]
     Dosage: 40MG PER DAY
     Route: 048
  6. MIRTAZAPINE [Concomitant]
     Dosage: 22.5MG AT NIGHT
     Route: 048
  7. CITALOPRAM [Concomitant]
     Dosage: 20MG PER DAY
  8. ZOFRAN [Concomitant]
     Indication: NAUSEA
     Dosage: 8MG AS REQUIRED
     Route: 048
  9. CISPLATIN [Suspect]
     Indication: CERVIX CARCINOMA
     Dosage: 50MGM2 CYCLIC
     Route: 042
     Dates: start: 20110223, end: 20110803
  10. PROCHLORPERAZINE [Concomitant]
     Indication: NAUSEA
     Dosage: 10MG AS REQUIRED
     Route: 048
  11. SENNA [Concomitant]
     Indication: CONSTIPATION
     Dosage: 1TAB AS REQUIRED
     Route: 048
  12. IBUPROFEN [Concomitant]
     Dosage: 600MG AS REQUIRED
  13. TOPOTECAN [Suspect]
     Indication: CERVIX CARCINOMA
     Dosage: .75MGM2 CYCLIC
     Route: 042
     Dates: start: 20110223, end: 20110804
  14. KLONOPIN [Concomitant]
     Indication: ANXIETY
     Route: 048
  15. PERCOCET [Concomitant]
     Indication: PAIN
     Route: 048

REACTIONS (1)
  - HYPERTENSIVE CRISIS [None]
